FAERS Safety Report 8491817-5 (Version None)
Quarter: 2012Q3

REPORT INFORMATION
  Report Type: 
  Country: None (occurrence: None)
  Receive Date: 20120706
  Receipt Date: 20120626
  Transmission Date: 20120928
  Serious: Yes (Hospitalization, Other)
  Sender: FDA-Public Use
  Company Number: GB-PFIZER INC-2012128728

PATIENT
  Age: 43 Year
  Sex: Male

DRUGS (11)
  1. CIPROFLOXACIN HCL [Suspect]
     Dosage: 500 MG, 2X/DAY
  2. VORICONAZOLE [Concomitant]
     Indication: ASPERGILLOSIS
     Dosage: UNK
     Route: 065
  3. AMPHOTERICIN B [Concomitant]
     Indication: ASPERGILLOSIS
     Route: 065
  4. CLARITHROMYCIN [Suspect]
     Indication: MYCOBACTERIUM FORTUITUM INFECTION
     Dosage: 500 MG, 2X/DAY
     Route: 065
  5. OSELTAMIVIR [Concomitant]
     Indication: ANTIBIOTIC THERAPY
     Dosage: 75 MG, 2X/DAY
     Route: 051
  6. CLARITHROMYCIN [Suspect]
     Dosage: 500 MG, 2X/DAY
  7. TEICOPLANIN [Concomitant]
     Indication: ANTIBIOTIC THERAPY
     Dosage: 400 MG, 1X/DAY
     Route: 051
  8. PREDNISOLONE [Concomitant]
     Indication: IMMUNOSUPPRESSION
     Dosage: 60 MG, 1X/DAY
     Route: 048
  9. CYCLOPHOSPHAMIDE [Concomitant]
     Indication: IMMUNOSUPPRESSION
     Dosage: 100 MG, 1X/DAY
     Route: 048
  10. MEROPENEM [Concomitant]
     Indication: ANTIBIOTIC THERAPY
     Dosage: 1 G, 2X/DAY
     Route: 051
  11. CIPROFLOXACIN HCL [Suspect]
     Indication: MYCOBACTERIUM FORTUITUM INFECTION
     Dosage: 500 MG, 2X/DAY
     Route: 065

REACTIONS (1)
  - LIVER INJURY [None]
